FAERS Safety Report 15826560 (Version 3)
Quarter: 2019Q2

REPORT INFORMATION
  Report Type: Report from Study
  Country: US (occurrence: US)
  Receive Date: 20190115
  Receipt Date: 20190523
  Transmission Date: 20190711
  Serious: Yes (Other)
  Sender: FDA-Public Use
  Company Number: PHEH2019US001443

PATIENT
  Sex: Male

DRUGS (1)
  1. COSENTYX [Suspect]
     Active Substance: SECUKINUMAB
     Indication: PRODUCT USED FOR UNKNOWN INDICATION
     Dosage: UNK
     Route: 065

REACTIONS (9)
  - Arthralgia [Unknown]
  - Wrong technique in device usage process [Unknown]
  - Arthritis infective [Unknown]
  - Psoriasis [Not Recovered/Not Resolved]
  - Upper limb fracture [Unknown]
  - Fall [Unknown]
  - Pain in extremity [Unknown]
  - Incorrect dose administered [Unknown]
  - Arthritis [Unknown]
